FAERS Safety Report 12948089 (Version 2)
Quarter: 2016Q4

REPORT INFORMATION
  Report Type: Spontaneous
  Country: US (occurrence: US)
  Receive Date: 20161117
  Receipt Date: 20161129
  Transmission Date: 20170207
  Serious: Yes (Other)
  Sender: FDA-Public Use
  Company Number: US-ROCHE-1855896

PATIENT
  Age: 65 Year
  Sex: Female
  Weight: 68.7 kg

DRUGS (2)
  1. XELODA [Suspect]
     Active Substance: CAPECITABINE
     Indication: HER-2 POSITIVE BREAST CANCER
     Dosage: 2 TIMES DAILY FOR 14 DAYS AND OFF 7 DAYS THEN REPEAT.
     Route: 065
  2. TYKERB [Concomitant]
     Active Substance: LAPATINIB DITOSYLATE

REACTIONS (5)
  - Lactic acidosis [Unknown]
  - Fatigue [Not Recovered/Not Resolved]
  - Syncope [Unknown]
  - Hepatic failure [Not Recovered/Not Resolved]
  - Metabolic alkalosis [Unknown]

NARRATIVE: CASE EVENT DATE: 20161114
